FAERS Safety Report 6335587-5 (Version None)
Quarter: 2009Q3

REPORT INFORMATION
  Report Type: 
  Country: None (occurrence: None)
  Receive Date: 20090831
  Receipt Date: 20090819
  Transmission Date: 20100115
  Serious: Yes (Other)
  Sender: FDA-Public Use
  Company Number: AU-PFIZER INC-2009256562

PATIENT
  Age: 75 Year

DRUGS (1)
  1. CABASER [Suspect]

REACTIONS (2)
  - HEART VALVE INCOMPETENCE [None]
  - MYOCARDIAL INFARCTION [None]
